FAERS Safety Report 11943135 (Version 1)
Quarter: 2016Q1

REPORT INFORMATION
  Report Type: Spontaneous
  Country: US (occurrence: US)
  Receive Date: 20160125
  Receipt Date: 20160125
  Transmission Date: 20160526
  Serious: No
  Sender: FDA-Public Use
  Company Number: US-UNITED THERAPEUTICS-UNT-2015-009437

PATIENT
  Sex: Female
  Weight: 116.1 kg

DRUGS (8)
  1. ORENITRAM [Suspect]
     Active Substance: TREPROSTINIL
     Dosage: 12 MG, BID
     Route: 048
  2. COUMADIN [Concomitant]
     Active Substance: WARFARIN SODIUM
     Indication: PRODUCT USED FOR UNKNOWN INDICATION
  3. ORENITRAM [Suspect]
     Active Substance: TREPROSTINIL
     Dosage: UNK
     Route: 048
  4. ORENITRAM [Suspect]
     Active Substance: TREPROSTINIL
     Dosage: 10 MG, BID
     Route: 048
     Dates: start: 20150122
  5. TRACLEER [Concomitant]
     Active Substance: BOSENTAN
     Indication: PRODUCT USED FOR UNKNOWN INDICATION
     Dosage: UNK
  6. ORENITRAM [Suspect]
     Active Substance: TREPROSTINIL
     Indication: PULMONARY ARTERIAL HYPERTENSION
     Dosage: 9 MG, BID
     Route: 048
     Dates: start: 20150122
  7. ORENITRAM [Suspect]
     Active Substance: TREPROSTINIL
     Dosage: UNK
     Route: 048
  8. ORENITRAM [Suspect]
     Active Substance: TREPROSTINIL
     Dosage: 12 MG, TID
     Route: 048

REACTIONS (11)
  - Oxygen saturation decreased [Not Recovered/Not Resolved]
  - Headache [Recovered/Resolved]
  - Arthralgia [Unknown]
  - Diarrhoea [Recovered/Resolved]
  - Pain in jaw [Recovered/Resolved]
  - Vomiting [Recovered/Resolved]
  - Fatigue [Unknown]
  - Oropharyngeal pain [Unknown]
  - Musculoskeletal pain [Unknown]
  - Flushing [Unknown]
  - Pulmonary arterial hypertension [Not Recovered/Not Resolved]

NARRATIVE: CASE EVENT DATE: 2015
